FAERS Safety Report 23190604 (Version 1)
Quarter: 2023Q4

REPORT INFORMATION
  Report Type: Report from Study
  Country: CA (occurrence: None)
  Receive Date: 20231116
  Receipt Date: 20231116
  Transmission Date: 20240110
  Serious: Yes (Other)
  Sender: FDA-Public Use
  Company Number: 2023A257121

PATIENT
  Age: 73 Year
  Sex: Female
  Weight: 175 kg

DRUGS (1)
  1. IMFINZI [Suspect]
     Active Substance: DURVALUMAB
     Indication: Metastases to biliary tract
     Route: 042
     Dates: start: 20230906

REACTIONS (2)
  - Pulmonary thrombosis [Unknown]
  - Ovarian vein thrombosis [Unknown]

NARRATIVE: CASE EVENT DATE: 20230101
